FAERS Safety Report 5884896-2 (Version None)
Quarter: 2008Q3

REPORT INFORMATION
  Report Type: 
  Country: None (occurrence: None)
  Receive Date: 20080916
  Receipt Date: 20080905
  Transmission Date: 20090109
  Serious: Yes (Other)
  Sender: FDA-Public Use
  Company Number: GB-WYE-G02118608

PATIENT
  Age: 89 Year
  Sex: Male
  Weight: 60 kg

DRUGS (22)
  1. TAZOCIN [Suspect]
     Route: 042
     Dates: start: 20080823, end: 20080826
  2. CHLORPHENIRAMINE MALEATE [Concomitant]
     Dosage: UNKNOWN
  3. DIGOXIN [Concomitant]
     Dosage: UNKNOWN
  4. ENOXAPARIN SODIUM [Concomitant]
     Dosage: UNKNOWN
  5. PROPOFOL [Concomitant]
     Dosage: UNKNOWN
  6. GENTAMICIN SULFATE [Concomitant]
     Dosage: UNKNOWN
  7. INSULIN HUMAN [Concomitant]
     Dosage: UNKNOWN
  8. LACTULOSE [Concomitant]
     Dosage: UNKNOWN
  9. MAGNESIUM SULFATE [Concomitant]
     Dosage: UNKNOWN
  10. METRONIDAZOLE [Concomitant]
     Dosage: UNKNOWN
  11. MORPHINE [Concomitant]
     Dosage: UNKNOWN
  12. NOREPINEPHRINE [Concomitant]
     Dosage: UNKNOWN
  13. PANTOPRAZOLE [Concomitant]
     Dosage: UNKNOWN
  14. ACETAMINOPHEN [Concomitant]
     Dosage: UNKNOWN
     Route: 042
  15. POTASSIUM CHLORIDE [Concomitant]
     Dosage: UNKNOWN
  16. REMIFENTANIL [Concomitant]
     Dosage: UNKNOWN
  17. SERTRALINE HYDROCHLORIDE [Concomitant]
     Dosage: UNKNOWN
  18. SODIUM CHLORIDE 0.9% [Concomitant]
     Dosage: 0.9% FREQUENCY UNKNOWN
  19. TEICOPLANIN [Concomitant]
     Dosage: UNKNOWN
  20. TEMAZEPAM [Concomitant]
     Dosage: UNKNOWN
  21. WARFARIN SODIUM [Concomitant]
     Dosage: UNKNOWN
  22. AMIODARONE HCL [Concomitant]
     Dosage: UNKNOWN

REACTIONS (4)
  - ACTIVATED PARTIAL THROMBOPLASTIN TIME PROLONGED [None]
  - COAGULOPATHY [None]
  - INTERNATIONAL NORMALISED RATIO ABNORMAL [None]
  - PROTHROMBIN TIME PROLONGED [None]
